FAERS Safety Report 11082073 (Version 2)
Quarter: 2017Q1

REPORT INFORMATION
  Report Type: Report from Study
  Country: US (occurrence: US)
  Receive Date: 20150501
  Receipt Date: 20170110
  Transmission Date: 20170428
  Serious: Yes (Death, Other)
  Sender: FDA-Public Use
  Company Number: US-SA-2015SA053382

PATIENT
  Age: 50 Year
  Sex: Female

DRUGS (1)
  1. FABRAZYME [Suspect]
     Active Substance: AGALSIDASE BETA
     Indication: FABRY^S DISEASE
     Dosage: FREQUENCY: Q2
     Route: 042
     Dates: start: 20040517, end: 20161202

REACTIONS (2)
  - Breast cancer [Unknown]
  - Death [Fatal]

NARRATIVE: CASE EVENT DATE: 20150421
